FAERS Safety Report 8214872-6 (Version None)
Quarter: 2012Q1

REPORT INFORMATION
  Report Type: 
  Country: None (occurrence: None)
  Receive Date: 20120316
  Receipt Date: 20120307
  Transmission Date: 20120608
  Serious: Yes (Other)
  Sender: FDA-Public Use
  Company Number: JP-JNJFOC-20110107821

PATIENT
  Sex: Female
  Weight: 60 kg

DRUGS (9)
  1. REMICADE [Suspect]
     Route: 042
  2. OMEPRAZOLE [Concomitant]
     Route: 048
  3. TIZANIDINE HCL [Concomitant]
     Route: 048
  4. REMICADE [Suspect]
     Indication: PSORIATIC ARTHROPATHY
     Route: 042
     Dates: start: 20100816, end: 20100816
  5. REMICADE [Suspect]
     Route: 042
  6. REMICADE [Suspect]
     Route: 042
  7. VOLTAREN [Concomitant]
     Route: 048
  8. REMICADE [Suspect]
     Route: 042
     Dates: start: 20100301, end: 20100301
  9. RHYTHMY [Concomitant]
     Route: 048

REACTIONS (1)
  - LUNG DISORDER [None]
